FAERS Safety Report 6417645-X (Version None)
Quarter: 2009Q4

REPORT INFORMATION
  Report Type: 
  Country: None (occurrence: None)
  Receive Date: 20091026
  Receipt Date: 20091013
  Transmission Date: 20100525
  Serious: Yes (Other)
  Sender: FDA-Public Use
  Company Number: ADR36882009

PATIENT
  Age: 42 Year
  Sex: Male

DRUGS (3)
  1. SIMVASTATIN [Suspect]
     Indication: HYPERLIPIDAEMIA
     Dosage: 10 MG, 1/1 DAYS
     Route: 048
  2. BEZAFIBRATE [Concomitant]
  3. LISINOPRIL [Concomitant]

REACTIONS (6)
  - BACK PAIN [None]
  - BLOOD CREATINE PHOSPHOKINASE INCREASED [None]
  - GLYCOGEN STORAGE DISEASE TYPE II [None]
  - LEFT VENTRICULAR FAILURE [None]
  - MUSCLE SPASMS [None]
  - RESPIRATORY FAILURE [None]
